FAERS Safety Report 8304877-9 (Version None)
Quarter: 2012Q2

REPORT INFORMATION
  Report Type: 
  Country: None (occurrence: None)
  Receive Date: 20120423
  Receipt Date: 20120416
  Transmission Date: 20120825
  Serious: Yes (Other)
  Sender: FDA-Public Use
  Company Number: US-BAYER-2011-077965

PATIENT
  Age: 25 Year
  Sex: Female
  Weight: 77.098 kg

DRUGS (4)
  1. METOCLOPRAMIDE [Concomitant]
     Indication: NAUSEA
     Dosage: 10 MG, UNK
     Route: 048
  2. ACIPHEX [Concomitant]
     Route: 048
  3. YAZ [Suspect]
     Indication: CONTRACEPTION
     Dosage: UNK
     Dates: start: 20080311, end: 20100301
  4. HYDROXYZINE [Concomitant]
     Indication: NAUSEA
     Dosage: 10MG/5ML
     Route: 048

REACTIONS (7)
  - GALLBLADDER DISORDER [None]
  - PAIN [None]
  - DEPRESSION [None]
  - INJURY [None]
  - MENTAL DISORDER [None]
  - CHOLECYSTITIS CHRONIC [None]
  - EMOTIONAL DISTRESS [None]
